FAERS Safety Report 25046854 (Version 1)
Quarter: 2025Q1

REPORT INFORMATION
  Report Type: Spontaneous
  Country: US (occurrence: None)
  Receive Date: 20250304
  Receipt Date: 20250304
  Transmission Date: 20250409
  Serious: No
  Sender: FDA-CTU
  Company Number: None

PATIENT

DRUGS (1)
  1. ABILIFY [Suspect]
     Active Substance: ARIPIPRAZOLE

REACTIONS (6)
  - Treatment failure [None]
  - Drug ineffective [None]
  - Aggression [None]
  - Intentional self-injury [None]
  - Patient elopement [None]
  - Physical assault [None]
